FAERS Safety Report 18711717 (Version 1)
Quarter: 2021Q1

REPORT INFORMATION
  Report Type: Spontaneous
  Country: US (occurrence: US)
  Receive Date: 20210107
  Receipt Date: 20210107
  Transmission Date: 20210419
  Serious: Yes (Death, Other)
  Sender: FDA-Public Use
  Company Number: US-SA-2021SA002205

PATIENT

DRUGS (3)
  1. PHYSOSTIGMINE [Suspect]
     Active Substance: PHYSOSTIGMINE
     Indication: TACHYCARDIA
  2. DIPHENHYDRAMINE. [Suspect]
     Active Substance: DIPHENHYDRAMINE
     Dosage: 950 MG
     Route: 048
  3. PHYSOSTIGMINE [Suspect]
     Active Substance: PHYSOSTIGMINE
     Indication: AGITATION
     Dosage: 0.5 MG, 1X

REACTIONS (3)
  - Agitation [Unknown]
  - Tachycardia [Fatal]
  - Cardiac arrest [Fatal]
